FAERS Safety Report 7901003-2 (Version None)
Quarter: 2011Q4

REPORT INFORMATION
  Report Type: 
  Country: None (occurrence: None)
  Receive Date: 20111108
  Receipt Date: 20111105
  Transmission Date: 20120403
  Serious: Yes (Other)
  Sender: FDA-Public Use
  Company Number: US-PFIZER INC-2011270872

PATIENT
  Sex: Female
  Weight: 62.585 kg

DRUGS (1)
  1. EFFEXOR XR [Suspect]
     Dosage: 75 MG, 1X/DAY
     Route: 048
     Dates: start: 20010101

REACTIONS (3)
  - NERVOUS SYSTEM DISORDER [None]
  - IRRITABILITY [None]
  - AGITATION [None]
